FAERS Safety Report 7985437-6 (Version None)
Quarter: 2011Q4

REPORT INFORMATION
  Report Type: 
  Country: None (occurrence: None)
  Receive Date: 20111216
  Receipt Date: 20111201
  Transmission Date: 20120403
  Serious: Yes (Other)
  Sender: FDA-Public Use
  Company Number: NZ-ROCHE-1018110

PATIENT
  Sex: Male
  Weight: 37.8 kg

DRUGS (11)
  1. MYCOPHENOLATE MOFETIL [Suspect]
     Dosage: DOSE REDUCED
     Route: 048
  2. MYCOPHENOLATE MOFETIL [Suspect]
     Indication: TRANSPLANT
     Dosage: 750/500
     Route: 048
  3. LAMIVUDINE [Suspect]
     Indication: HEPATITIS B
     Route: 048
     Dates: start: 20100101
  4. LAMIVUDINE [Suspect]
     Dosage: DOSE REDUCED
     Route: 048
  5. NORTRIPTYLINE HCL [Concomitant]
     Indication: PAIN
     Route: 048
     Dates: start: 20100101
  6. NEORECORMON [Suspect]
     Route: 058
     Dates: start: 20111028
  7. TENOFOVIR [Concomitant]
     Indication: HEPATITIS B
     Route: 048
     Dates: start: 20100101
  8. GABAPENTIN [Concomitant]
     Indication: PAIN
     Route: 048
  9. NEORECORMON [Suspect]
     Indication: ANAEMIA
     Route: 058
     Dates: start: 20111031
  10. NEORECORMON [Suspect]
     Route: 058
     Dates: start: 20111028
  11. TACROLIMUS [Concomitant]
     Indication: TRANSPLANT
     Route: 048
     Dates: start: 20080101

REACTIONS (2)
  - ANAEMIA [None]
  - NO THERAPEUTIC RESPONSE [None]
